FAERS Safety Report 7450332-8 (Version None)
Quarter: 2011Q2

REPORT INFORMATION
  Report Type: 
  Country: None (occurrence: None)
  Receive Date: 20110422
  Receipt Date: 20110412
  Transmission Date: 20111010
  Serious: Yes (Hospitalization)
  Sender: FDA-Public Use
  Company Number: NGX_00393_2011

PATIENT
  Sex: Female
  Weight: 91.4 kg

DRUGS (6)
  1. TEICOPLANIN [Concomitant]
  2. QUTENZA [Suspect]
     Indication: NEUROPATHY PERIPHERAL
     Dosage: (DF TOPICAL)
     Route: 061
     Dates: start: 20110302, end: 20110302
  3. LYRICA [Concomitant]
  4. TRAMADOL HCL [Concomitant]
  5. GENTAMYCIN /00047101/ [Concomitant]
  6. VERSATIS [Concomitant]

REACTIONS (1)
  - IMPLANT SITE PAIN [None]
